FAERS Safety Report 6897803-0 (Version None)
Quarter: 2010Q3

REPORT INFORMATION
  Report Type: 
  Country: None (occurrence: None)
  Receive Date: 20100802
  Receipt Date: 20070723
  Transmission Date: 20110219
  Serious: No
  Sender: FDA-Public Use
  Company Number: US-PFIZER INC-2007061621

PATIENT
  Sex: Female
  Weight: 48.5 kg

DRUGS (5)
  1. LYRICA [Suspect]
     Indication: RESTLESS LEGS SYNDROME
     Dates: start: 20070101
  2. LYRICA [Interacting]
     Indication: HERPES ZOSTER
  3. REQUIP [Interacting]
     Indication: RESTLESS LEGS SYNDROME
     Dates: start: 20060901
  4. ELAVIL [Concomitant]
  5. LIBRIUM [Concomitant]

REACTIONS (2)
  - DRUG INTERACTION [None]
  - SENSITIVITY OF TEETH [None]
